FAERS Safety Report 6911304-2 (Version None)
Quarter: 2010Q3

REPORT INFORMATION
  Report Type: 
  Country: None (occurrence: None)
  Receive Date: 20100806
  Receipt Date: 20100723
  Transmission Date: 20110219
  Serious: Yes (Other)
  Sender: FDA-Public Use
  Company Number: PHHY2010GB22408

PATIENT
  Sex: Female

DRUGS (2)
  1. GLEEVEC [Suspect]
     Indication: CHRONIC MYELOID LEUKAEMIA
     Dosage: 400
     Route: 048
     Dates: start: 20061104
  2. SERETIDE [Concomitant]
     Indication: ASTHMA
     Dosage: PRN

REACTIONS (3)
  - ARTHRALGIA [None]
  - HERNIA REPAIR [None]
  - OSTEONECROSIS [None]
